FAERS Safety Report 5601063-8 (Version None)
Quarter: 2008Q1

REPORT INFORMATION
  Report Type: 
  Country: None (occurrence: None)
  Receive Date: 20080122
  Receipt Date: 20080122
  Transmission Date: 20080703
  Serious: Yes (Other)
  Sender: FDA-Public Use
  Company Number: None

PATIENT
  Sex: Female
  Weight: 83.0083 kg

DRUGS (2)
  1. CELEBREX [Suspect]
     Indication: ARTHRITIS
     Dosage: SORRY, I DON'T REMEMBER 2 TIMES A DAY PO
     Route: 048
     Dates: start: 20040101, end: 20040106
  2. CELEBREX [Suspect]
     Indication: FIBROMYALGIA
     Dosage: SORRY, I DON'T REMEMBER 2 TIMES A DAY PO
     Route: 048
     Dates: start: 20040101, end: 20040106

REACTIONS (1)
  - HAEMATOCHEZIA [None]
